FAERS Safety Report 7899622-5 (Version None)
Quarter: 2011Q4

REPORT INFORMATION
  Report Type: 
  Country: None (occurrence: None)
  Receive Date: 20111107
  Receipt Date: 20110916
  Transmission Date: 20120403
  Serious: No
  Sender: FDA-Public Use
  Company Number: US-AMGEN-USASP2011047875

PATIENT
  Sex: Male

DRUGS (3)
  1. METHOTREXATE [Concomitant]
     Dosage: 8 MG, QWK
     Dates: start: 20070101
  2. ENBREL [Suspect]
     Indication: PSORIASIS
     Dosage: 50 MG, QWK
     Dates: start: 20070323
  3. ENBREL [Suspect]
     Indication: PSORIATIC ARTHROPATHY

REACTIONS (1)
  - TOOTH ABSCESS [None]
